FAERS Safety Report 23664708 (Version 1)
Quarter: 2024Q1

REPORT INFORMATION
  Report Type: Spontaneous
  Country: US (occurrence: US)
  Receive Date: 20240322
  Receipt Date: 20240322
  Transmission Date: 20240410
  Serious: Yes (Hospitalization)
  Sender: FDA-Public Use
  Company Number: US-MYLANLABS-2024M1023053

PATIENT
  Age: 47 Year
  Sex: Male

DRUGS (11)
  1. GABAPENTIN [Suspect]
     Active Substance: GABAPENTIN
     Indication: Alcohol use disorder
     Dosage: 600 MILLIGRAM, TID
     Route: 065
     Dates: start: 2018
  2. GABAPENTIN [Suspect]
     Active Substance: GABAPENTIN
     Dosage: UNK, DOSE DECREASED AND CONTINUED
     Route: 065
  3. ACAMPROSATE [Suspect]
     Active Substance: ACAMPROSATE
     Indication: Alcohol use disorder
     Dosage: 666 MILLIGRAM, TID
     Route: 065
     Dates: start: 2016
  4. ACAMPROSATE [Suspect]
     Active Substance: ACAMPROSATE
     Dosage: UNK,  DOSE DECREASED AND CONTINUED
     Route: 065
  5. NALTREXONE [Suspect]
     Active Substance: NALTREXONE
     Indication: Alcohol use disorder
     Dosage: 50 MILLIGRAM, QD
     Route: 048
     Dates: start: 2016
  6. NALTREXONE [Suspect]
     Active Substance: NALTREXONE
     Indication: Alcohol use disorder
     Dosage: 380 MILLIGRAM, MONTHLY
     Route: 030
     Dates: start: 2019
  7. DISULFIRAM [Suspect]
     Active Substance: DISULFIRAM
     Indication: Alcohol use disorder
     Dosage: 250 MILLIGRAM
     Route: 065
     Dates: start: 2021
  8. IBUPROFEN [Concomitant]
     Active Substance: IBUPROFEN
     Indication: Alcohol use disorder
     Dosage: UNK
     Route: 065
  9. VENLAFAXINE [Concomitant]
     Active Substance: VENLAFAXINE HYDROCHLORIDE
     Indication: Alcohol use disorder
     Dosage: 225 MILLIGRAM, QD
     Route: 065
  10. RISPERIDONE [Concomitant]
     Active Substance: RISPERIDONE
     Indication: Product used for unknown indication
     Dosage: UNK
     Route: 065
  11. RISPERIDONE [Concomitant]
     Active Substance: RISPERIDONE
     Dosage: 2 MILLIGRAM, QD (INCREASED) NIGHTLY
     Route: 065

REACTIONS (4)
  - Drug ineffective [Unknown]
  - Fatigue [Unknown]
  - Product dose omission in error [Unknown]
  - Off label use [Unknown]
